FAERS Safety Report 4973837-8 (Version None)
Quarter: 2006Q2

REPORT INFORMATION
  Report Type: 
  Country: None (occurrence: None)
  Receive Date: 20060414
  Receipt Date: 20051006
  Transmission Date: 20061013
  Serious: Yes (Hospitalization)
  Sender: FDA-Public Use
  Company Number: US-MERCK-0510USA05761

PATIENT
  Age: 62 Year
  Sex: Male
  Weight: 64 kg

DRUGS (4)
  1. VIOXX [Suspect]
     Indication: PAIN MANAGEMENT
     Route: 048
     Dates: start: 20011212, end: 20020815
  2. GLUCOPHAGE [Concomitant]
     Indication: DIABETES MELLITUS
     Route: 065
  3. ACCUPRIL [Concomitant]
     Indication: HYPERTENSION
     Route: 065
  4. GLYBURIDE [Concomitant]
     Indication: DIABETES MELLITUS
     Route: 065

REACTIONS (15)
  - BLOOD GLUCOSE INCREASED [None]
  - CARDIOVASCULAR DISORDER [None]
  - CHEST PAIN [None]
  - CORONARY ARTERY DISEASE [None]
  - LACUNAR INFARCTION [None]
  - LIMB INJURY [None]
  - MITRAL VALVE INCOMPETENCE [None]
  - MYOCARDIAL INFARCTION [None]
  - PANCREATITIS [None]
  - PERICARDIAL EFFUSION [None]
  - PLEURAL EFFUSION [None]
  - POSTPERICARDIOTOMY SYNDROME [None]
  - SINUS TACHYCARDIA [None]
  - WOUND DEHISCENCE [None]
  - WOUND INFECTION [None]
